FAERS Safety Report 17049325 (Version 1)
Quarter: 2019Q4

REPORT INFORMATION
  Report Type: Report from Study
  Country: US (occurrence: US)
  Receive Date: 20191119
  Receipt Date: 20191119
  Transmission Date: 20200122
  Serious: No
  Sender: FDA-Public Use
  Company Number: US-IPSEN BIOPHARMACEUTICALS, INC.-2019-21457

PATIENT
  Age: 30 Year

DRUGS (1)
  1. DYSPORT [Suspect]
     Active Substance: ABOBOTULINUMTOXINA
     Indication: MUSCLE SPASTICITY
     Dosage: ELBOW FLEXOR-7, SHOULDER MUSCLES- 5 (UNITS: NOT REPORTED)
     Route: 030

REACTIONS (1)
  - Muscle spasticity [Unknown]
